FAERS Safety Report 8419245 (Version 2)
Quarter: 2012Q4

REPORT INFORMATION
  Report Type: Spontaneous
  Country: DE (occurrence: None)
  Receive Date: 20120210
  Receipt Date: 20121106
  Transmission Date: 20130627
  Serious: Yes (Life-Threatening, Hospitalization)
  Sender: FDA-Public Use
  Company Number: 2012-0605

PATIENT
  Age: 4 Year
  Sex: Male
  Weight: 11.9 kg

DRUGS (1)
  1. INCRELEX [Suspect]
     Indication: PRIMARY INSULIN LIKE GROWTH FACTOR-1 DEFICIENCY
     Dosage: (7 IU, 2 IN 1 D)
     Route: 058
     Dates: start: 20100928, end: 20120102

REACTIONS (1)
  - Volvulus [None]
